FAERS Safety Report 10434302 (Version 1)
Quarter: 2014Q3

REPORT INFORMATION
  Report Type: Spontaneous
  Country: US (occurrence: US)
  Receive Date: 20140905
  Receipt Date: 20140905
  Transmission Date: 20150326
  Serious: No
  Sender: FDA-Public Use
  Company Number: US-TEVA-506881USA

PATIENT
  Age: 50 Year
  Sex: Female

DRUGS (2)
  1. MUCINEX [Concomitant]
     Active Substance: GUAIFENESIN
     Indication: SECRETION DISCHARGE
     Dates: start: 201405
  2. QNASL [Suspect]
     Active Substance: BECLOMETHASONE DIPROPIONATE
     Dosage: 2 SPRAYS EACH NOSTRIL DAILY
     Route: 045

REACTIONS (3)
  - Drug ineffective [Unknown]
  - Sinus headache [Unknown]
  - Secretion discharge [Unknown]
